FAERS Safety Report 5139724-X (Version None)
Quarter: 2006Q4

REPORT INFORMATION
  Report Type: 
  Country: None (occurrence: None)
  Receive Date: 20061024
  Receipt Date: 20061011
  Transmission Date: 20070319
  Serious: Yes (Hospitalization)
  Sender: FDA-Public Use
  Company Number: 2006US002288

PATIENT
  Age: 78 Year
  Sex: Male

DRUGS (6)
  1. FUNGUARD (MICAFUNGIN) INJECTION [Suspect]
     Indication: FUNGAL INFECTION
     Dates: start: 20060821, end: 20060824
  2. FUNGUARD (MICAFUNGIN) INJECTION [Suspect]
     Indication: PLEURISY
     Dates: start: 20060821, end: 20060824
  3. SULFAMETHOXAZOLE + TRIMETHOPRIM [Concomitant]
  4. PREDONINE (PREDNISOLONE SODIUM SUCCINATE) [Concomitant]
  5. TIENAM (IMIPENEM, CILASTATIN SODIUM) [Concomitant]
  6. LEVOFLOXACIN [Concomitant]

REACTIONS (3)
  - INFLAMMATION [None]
  - MENINGITIS FUNGAL [None]
  - MYOCLONUS [None]
